FAERS Safety Report 7668715-X (Version None)
Quarter: 2011Q3

REPORT INFORMATION
  Report Type: 
  Country: None (occurrence: None)
  Receive Date: 20110808
  Receipt Date: 20110727
  Transmission Date: 20111222
  Serious: Yes (Other)
  Sender: FDA-Public Use
  Company Number: CA-JNJFOC-20110800759

PATIENT
  Sex: Male
  Weight: 63.8 kg

DRUGS (2)
  1. REMICADE [Suspect]
     Indication: AUTOIMMUNE DISORDER
     Dosage: FIRST TREATMENT
     Route: 042
  2. REMICADE [Suspect]
     Indication: CROHN'S DISEASE
     Dosage: FIRST TREATMENT
     Route: 042

REACTIONS (2)
  - INFUSION RELATED REACTION [None]
  - SHOCK [None]
